FAERS Safety Report 6785240-9 (Version None)
Quarter: 2010Q2

REPORT INFORMATION
  Report Type: 
  Country: None (occurrence: None)
  Receive Date: 20100622
  Receipt Date: 20100622
  Transmission Date: 20101027
  Serious: Yes (Other)
  Sender: FDA-Public Use
  Company Number: None

PATIENT
  Age: 24 Year
  Sex: Female
  Weight: 61.6892 kg

DRUGS (3)
  1. TOPIRAMATE 25 MG TABLETS TEVA/GENERIC TOPOMAX [Suspect]
     Indication: MIGRAINE
     Dosage: 1/2 TABLET Q BEDTIME QD X 1 WEEK FULL TABLET 1 BEDTIME QD X 1 WEEK, 2 TAB PO
     Route: 048
     Dates: start: 20100405, end: 20100505
  2. BIRTH CONTROL PILLS [Concomitant]
  3. LEXAPRO [Concomitant]

REACTIONS (11)
  - BALANCE DISORDER [None]
  - BLINDNESS [None]
  - BLOOD PRESSURE SYSTOLIC DECREASED [None]
  - COLD SWEAT [None]
  - DIZZINESS [None]
  - EXTRASYSTOLES [None]
  - NAUSEA [None]
  - TINNITUS [None]
  - TREMOR [None]
  - VERTIGO [None]
  - VOMITING [None]
